FAERS Safety Report 17451005 (Version 1)
Quarter: 2020Q1

REPORT INFORMATION
  Report Type: Spontaneous
  Country: US (occurrence: US)
  Receive Date: 20200222
  Receipt Date: 20200222
  Transmission Date: 20200409
  Serious: Yes (Hospitalization)
  Sender: FDA-Public Use
  Company Number: None

PATIENT
  Age: 91 Year
  Sex: Male
  Weight: 85.95 kg

DRUGS (22)
  1. COMPAZINE [Concomitant]
     Active Substance: PROCHLORPERAZINE MALEATE
  2. FIBER [Concomitant]
     Active Substance: PSYLLIUM HUSK
  3. ACETAMINOPHEN. [Concomitant]
     Active Substance: ACETAMINOPHEN
  4. EFUDEX [Concomitant]
     Active Substance: FLUOROURACIL
  5. COZAAR [Concomitant]
     Active Substance: LOSARTAN POTASSIUM
  6. COLACE [Concomitant]
     Active Substance: DOCUSATE SODIUM
  7. KEFLEX [Concomitant]
     Active Substance: CEPHALEXIN
  8. FOLIC ACID. [Concomitant]
     Active Substance: FOLIC ACID
  9. FLUOXETINE [Concomitant]
     Active Substance: FLUOXETINE HYDROCHLORIDE
  10. VITAMIN D [Concomitant]
     Active Substance: VITAMIN D NOS
  11. PROSCAR [Concomitant]
     Active Substance: FINASTERIDE
  12. FLOMAX [Concomitant]
     Active Substance: TAMSULOSIN HYDROCHLORIDE
  13. COREG [Concomitant]
     Active Substance: CARVEDILOL
  14. VITAMIN C [Concomitant]
     Active Substance: ASCORBIC ACID
  15. NITROSTAT [Concomitant]
     Active Substance: NITROGLYCERIN
  16. MULTIVITAMIN [Concomitant]
     Active Substance: VITAMINS
  17. FUROSEMIDE. [Concomitant]
     Active Substance: FUROSEMIDE
  18. CAPECITABINE. [Suspect]
     Active Substance: CAPECITABINE
     Indication: COLON CANCER
     Route: 048
     Dates: start: 20190313
  19. UREA. [Concomitant]
     Active Substance: UREA
  20. MELATONIN [Concomitant]
     Active Substance: MELATONIN
  21. KLOR-CON [Concomitant]
     Active Substance: POTASSIUM CHLORIDE
  22. AMIODARONE [Concomitant]
     Active Substance: AMIODARONE

REACTIONS (1)
  - Hospitalisation [None]

NARRATIVE: CASE EVENT DATE: 20200218
